FAERS Safety Report 5581904-3 (Version None)
Quarter: 2008Q1

REPORT INFORMATION
  Report Type: 
  Country: None (occurrence: None)
  Receive Date: 20080104
  Receipt Date: 20071224
  Transmission Date: 20080703
  Serious: Yes (Hospitalization)
  Sender: FDA-Public Use
  Company Number: IL-ROCHE-538856

PATIENT
  Age: 30 Year
  Sex: Male

DRUGS (2)
  1. INTERFERON ALFA-2A [Suspect]
     Route: 065
     Dates: start: 20060101
  2. ANTIBIOTIC NOS [Concomitant]
     Dates: start: 20070101

REACTIONS (1)
  - PULMONARY TUBERCULOSIS [None]
